FAERS Safety Report 6439768-1 (Version None)
Quarter: 2009Q4

REPORT INFORMATION
  Report Type: 
  Country: None (occurrence: None)
  Receive Date: 20091113
  Receipt Date: 20091016
  Transmission Date: 20100525
  Serious: No
  Sender: FDA-Public Use
  Company Number: US-BAYER-200915759BCC

PATIENT
  Age: 81 Year
  Sex: Female
  Weight: 50 kg

DRUGS (2)
  1. ALEVE (CAPLET) [Suspect]
     Indication: BACK PAIN
     Dosage: TOTAL DAILY DOSE: 220 MG  UNIT DOSE: 220 MG
     Route: 048
     Dates: start: 20091015
  2. OYSTER SHELL CALCIUM [Concomitant]
     Route: 065

REACTIONS (6)
  - ABDOMINAL DISCOMFORT [None]
  - BACK PAIN [None]
  - DYSPEPSIA [None]
  - HEADACHE [None]
  - MIGRAINE [None]
  - NAUSEA [None]
